FAERS Safety Report 5977115-X (Version None)
Quarter: 2008Q4

REPORT INFORMATION
  Report Type: 
  Country: None (occurrence: None)
  Receive Date: 20081203
  Receipt Date: 20081121
  Transmission Date: 20090506
  Serious: Yes (Other)
  Sender: FDA-Public Use
  Company Number: US-ROCHE-586660

PATIENT
  Sex: Male

DRUGS (3)
  1. PEG-INTERFERON A-2A (RO 25-8310) [Suspect]
     Dosage: FORM: PRE-FILLED SYRINGE, RECEIVED 135 UG ONCE
     Route: 065
     Dates: start: 20080808
  2. RIBAVIRIN [Suspect]
     Dosage: DIVIDED DOSES.
     Route: 065
     Dates: start: 20080808
  3. RIBAVIRIN [Suspect]
     Route: 065

REACTIONS (11)
  - ABDOMINAL PAIN [None]
  - BACK PAIN [None]
  - BONE PAIN [None]
  - CANDIDIASIS [None]
  - CHEST PAIN [None]
  - CHOLECYSTECTOMY [None]
  - DIARRHOEA [None]
  - FATIGUE [None]
  - FLANK PAIN [None]
  - NAUSEA [None]
  - WHITE BLOOD CELL COUNT DECREASED [None]
